FAERS Safety Report 7772689-0 (Version None)
Quarter: 2011Q3

REPORT INFORMATION
  Report Type: 
  Country: None (occurrence: None)
  Receive Date: 20110922
  Receipt Date: 20100902
  Transmission Date: 20111222
  Serious: Yes (Other)
  Sender: FDA-Public Use
  Company Number: US-ASTRAZENECA-2007UW23279

PATIENT
  Age: 14112 Day
  Sex: Male
  Weight: 85.7 kg

DRUGS (24)
  1. SEROQUEL [Suspect]
     Route: 048
     Dates: start: 20020808, end: 20060414
  2. VICODIN [Concomitant]
     Indication: PAIN
     Dosage: 1 Q 6 HR
     Route: 048
  3. CAPTOPRIL [Concomitant]
  4. BENAZEPRIL HYDROCHLORIDE [Concomitant]
     Dosage: 5-10 MG
  5. TEMAZEPAM [Concomitant]
  6. SEROQUEL [Suspect]
     Route: 048
     Dates: start: 20030524
  7. TYLENOL-500 [Concomitant]
     Indication: PAIN
     Dosage: 1 Q 6 HR
     Route: 048
  8. LOTENSIN [Concomitant]
     Route: 048
  9. LOPID [Concomitant]
  10. SIMVASTATIN [Concomitant]
  11. MORPHINE SULFATE [Concomitant]
     Dosage: 0.5-48 MG
  12. ASPIRIN [Concomitant]
     Dosage: Q DAY
     Route: 048
  13. METOPROLOL [Concomitant]
     Dosage: 25-50 MG
  14. GLUCOPHAGE [Concomitant]
  15. MECLIZINE [Concomitant]
  16. ABILIFY [Concomitant]
  17. MILK OF MAGNESIA TAB [Concomitant]
  18. DARVOCET [Concomitant]
     Dosage: TID
     Route: 048
  19. GLYBURIDE [Concomitant]
  20. MOTRIN [Concomitant]
  21. CARVEDILOL [Concomitant]
  22. ENOXAPARIN [Concomitant]
     Dosage: 80-100 MG
  23. NORCO [Concomitant]
  24. THORAZINE [Concomitant]

REACTIONS (7)
  - CHEST PAIN [None]
  - DIABETES MELLITUS INADEQUATE CONTROL [None]
  - EAR PAIN [None]
  - GLYCOSURIA [None]
  - TYPE 2 DIABETES MELLITUS [None]
  - PANCREATITIS [None]
  - PANCREATITIS ACUTE [None]
